FAERS Safety Report 16084806 (Version 1)
Quarter: 2019Q1

REPORT INFORMATION
  Report Type: Spontaneous
  Country: US (occurrence: US)
  Receive Date: 20190318
  Receipt Date: 20190318
  Transmission Date: 20190418
  Serious: No
  Sender: FDA-Public Use
  Company Number: US-AVADEL SPECIALTY PHARMACEUTICALS, LLC-2019AVA00012

PATIENT
  Age: 81 Year
  Sex: Male
  Weight: 84.35 kg

DRUGS (10)
  1. BYSTOLIC [Concomitant]
     Active Substance: NEBIVOLOL HYDROCHLORIDE
  2. AMLODIPINE [Concomitant]
     Active Substance: AMLODIPINE BESYLATE
  3. MULTAQ [Concomitant]
     Active Substance: DRONEDARONE
  4. ATORVASTATIN [Concomitant]
     Active Substance: ATORVASTATIN
  5. LISINOPRIL. [Concomitant]
     Active Substance: LISINOPRIL
  6. ELIQUIS [Concomitant]
     Active Substance: APIXABAN
  7. NOCTIVA [Suspect]
     Active Substance: DESMOPRESSIN ACETATE
     Indication: POLLAKIURIA
     Dosage: 3.32 ?G, 1X/DAY (ONE SPRAY IN EACH NOSTRIL)
     Route: 045
     Dates: start: 201810, end: 201810
  8. NOCTIVA [Suspect]
     Active Substance: DESMOPRESSIN ACETATE
     Dosage: 1.66 ?G, 1X/DAY 30 MINUTES BEFORE BEDTIME
     Route: 045
     Dates: start: 201810, end: 201810
  9. DULOXETINE. [Concomitant]
     Active Substance: DULOXETINE
  10. RAPAFLO [Concomitant]
     Active Substance: SILODOSIN

REACTIONS (6)
  - Drug ineffective [Recovered/Resolved]
  - Cough [Recovered/Resolved]
  - Incorrect dose administered [Recovered/Resolved]
  - Product storage error [Recovered/Resolved]
  - Sneezing [Recovered/Resolved]
  - Product preparation issue [Recovered/Resolved]

NARRATIVE: CASE EVENT DATE: 201810
